FAERS Safety Report 20157850 (Version 1)
Quarter: 2021Q4

REPORT INFORMATION
  Report Type: Spontaneous
  Country: US (occurrence: US)
  Receive Date: 20211207
  Receipt Date: 20211207
  Transmission Date: 20220303
  Serious: No
  Sender: FDA-Public Use
  Company Number: US-ARBOR PHARMACEUTICALS, LLC-US-2021ARB001037

PATIENT
  Sex: Female

DRUGS (4)
  1. ZENZEDI [Suspect]
     Active Substance: DEXTROAMPHETAMINE SULFATE
     Indication: Product used for unknown indication
     Dosage: 60 MG, A DAY
  2. ZENZEDI [Suspect]
     Active Substance: DEXTROAMPHETAMINE SULFATE
     Dosage: 40 MG, UNK
  3. ZENZEDI [Suspect]
     Active Substance: DEXTROAMPHETAMINE SULFATE
     Dosage: 20 MG, BID (OCASSIONALLY EXTRA HALF TABLET)
  4. ZENZEDI [Suspect]
     Active Substance: DEXTROAMPHETAMINE SULFATE
     Indication: Product used for unknown indication
     Dosage: 10 MG, PRN

REACTIONS (3)
  - Product dose omission issue [Unknown]
  - Product prescribing error [Unknown]
  - Wrong technique in product usage process [Unknown]
